FAERS Safety Report 17053262 (Version 1)
Quarter: 2019Q4

REPORT INFORMATION
  Report Type: Spontaneous
  Country: US (occurrence: US)
  Receive Date: 20191120
  Receipt Date: 20191120
  Transmission Date: 20200122
  Serious: No
  Sender: FDA-Public Use
  Company Number: US-NOVOPROD-634269

PATIENT
  Sex: Female
  Weight: 82 kg

DRUGS (1)
  1. NOVOLOG MIX 70/30 [Suspect]
     Active Substance: INSULIN ASPART
     Indication: PRODUCT USED FOR UNKNOWN INDICATION
     Dosage: UNK
     Route: 058

REACTIONS (5)
  - Exposure during pregnancy [Unknown]
  - Asthma [Unknown]
  - Blood glucose increased [Recovered/Resolved]
  - Abdominal pain upper [Recovered/Resolved]
  - Pain in extremity [Unknown]
